FAERS Safety Report 5092193-0 (Version None)
Quarter: 2006Q3

REPORT INFORMATION
  Report Type: 
  Country: None (occurrence: None)
  Receive Date: 20060727
  Receipt Date: 20060426
  Transmission Date: 20061208
  Serious: Yes (Other)
  Sender: FDA-Public Use
  Company Number: 2006056308

PATIENT
  Sex: Female

DRUGS (5)
  1. LYRICA [Suspect]
     Indication: PARAESTHESIA
     Dosage: 100 MG (50 MG, 2 IN 1 D), ORAL
     Route: 048
     Dates: start: 20060301
  2. ZEBETA [Concomitant]
  3. ACIPHEX [Concomitant]
  4. REMERON [Concomitant]
  5. VASOTEC [Concomitant]

REACTIONS (3)
  - DIVERTICULUM [None]
  - DRUG THERAPY [None]
  - OESOPHAGITIS [None]
